FAERS Safety Report 18517833 (Version 2)
Quarter: 2020Q4

REPORT INFORMATION
  Report Type: Spontaneous
  Country: US (occurrence: US)
  Receive Date: 20201118
  Receipt Date: 20201214
  Transmission Date: 20210114
  Serious: No
  Sender: FDA-Public Use
  Company Number: US-PFIZER INC-2019101323

PATIENT
  Age: 77 Year
  Sex: Female

DRUGS (1)
  1. LYRICA [Suspect]
     Active Substance: PREGABALIN
     Indication: POLYNEUROPATHY
     Dosage: 200 MG, 1X/DAY (ONE CAPSULE BY MOUTH DAILY IN THE EVENING AT BEDTIME)
     Route: 048

REACTIONS (2)
  - Limb discomfort [Unknown]
  - Off label use [Unknown]
